FAERS Safety Report 16687780 (Version 16)
Quarter: 2022Q4

REPORT INFORMATION
  Report Type: Spontaneous
  Country: US (occurrence: US)
  Receive Date: 20190809
  Receipt Date: 20221024
  Transmission Date: 20230113
  Serious: Yes (Hospitalization)
  Sender: FDA-Public Use
  Company Number: US-PFIZER INC-2019328293

PATIENT
  Age: 74 Year
  Sex: Female
  Weight: 65.77 kg

DRUGS (9)
  1. PREMARIN [Suspect]
     Active Substance: ESTROGENS, CONJUGATED
     Indication: Hypertonic bladder
     Dosage: UNKNOWN DOSE, 3 TIMES A WEEK FOR MAINTENANCE
     Dates: start: 20190805
  2. PREMARIN [Suspect]
     Active Substance: ESTROGENS, CONJUGATED
     Dosage: 0.5 G, 3 TIMES A WEEK
  3. PREMARIN [Suspect]
     Active Substance: ESTROGENS, CONJUGATED
     Dosage: 1 G EVERY NIGHT OF THE WEEK
  4. PREMARIN [Suspect]
     Active Substance: ESTROGENS, CONJUGATED
     Dosage: UNK (USE 3X A WEEK FOR MAINTENANCE)
  5. PREMARIN [Suspect]
     Active Substance: ESTROGENS, CONJUGATED
     Dosage: MAYBE 2 TO 3 TIMES A WEEK; RUBS THE MEDICATION ON HER URETHRA
     Route: 066
  6. PREMARIN [Suspect]
     Active Substance: ESTROGENS, CONJUGATED
     Dosage: WAS TOLD TO USE EVERY OTHER DAY, BUT HAS BEEN USING EVERYDAY
  7. LEVOTHYROXINE [Concomitant]
     Active Substance: LEVOTHYROXINE
     Indication: Thyroid disorder
     Dosage: 137 UG, 1X/DAY
  8. LEVOTHYROXINE [Concomitant]
     Active Substance: LEVOTHYROXINE
     Indication: Thyroidectomy
  9. METFORMIN [Concomitant]
     Active Substance: METFORMIN HYDROCHLORIDE
     Indication: Diabetes mellitus
     Dosage: 1000 MG

REACTIONS (17)
  - Blood glucose increased [Unknown]
  - Pain [Unknown]
  - Memory impairment [Unknown]
  - Fatigue [Unknown]
  - Hypertonic bladder [Unknown]
  - Confusional state [Unknown]
  - Feeling abnormal [Unknown]
  - Malaise [Unknown]
  - Balance disorder [Unknown]
  - Cough [Unknown]
  - Weight decreased [Unknown]
  - Visual impairment [Unknown]
  - Off label use [Unknown]
  - Off label use [Unknown]
  - Product dispensing error [Unknown]
  - Off label use [Unknown]
  - Intentional product misuse [Unknown]
